FAERS Safety Report 12156319 (Version 2)
Quarter: 2016Q2

REPORT INFORMATION
  Report Type: Spontaneous
  Country: JP (occurrence: JP)
  Receive Date: 20160307
  Receipt Date: 20160415
  Transmission Date: 20160815
  Serious: Yes (Death, Hospitalization)
  Sender: FDA-Public Use
  Company Number: JP-ELI_LILLY_AND_COMPANY-JP201603000111

PATIENT
  Age: 64 Year
  Sex: Female
  Weight: 29 kg

DRUGS (17)
  1. GEMZAR [Suspect]
     Active Substance: GEMCITABINE HYDROCHLORIDE
     Indication: PANCREATIC CARCINOMA
     Dosage: 800 MG, UNK
     Route: 042
     Dates: start: 20150730, end: 20151224
  2. PROTECADIN [Concomitant]
     Active Substance: LAFUTIDINE
     Route: 048
  3. CEFMETAZOLE [Concomitant]
     Active Substance: CEFMETAZOLE
     Indication: FEBRILE NEUTROPENIA
     Route: 065
  4. KCL [Concomitant]
     Active Substance: POTASSIUM CHLORIDE
     Indication: FEBRILE NEUTROPENIA
     Route: 042
  5. AMLODIN [Concomitant]
     Active Substance: AMLODIPINE BESYLATE
     Route: 048
  6. CAMOSTAT MESILATE [Concomitant]
     Active Substance: CAMOSTAT MESYLATE
     Route: 048
  7. LOPEMIN                            /00384302/ [Concomitant]
     Active Substance: LOPERAMIDE HYDROCHLORIDE
     Route: 048
  8. ABRAXANE [Suspect]
     Active Substance: PACLITAXEL
     Indication: PANCREATIC CARCINOMA
     Dosage: 90 MG, UNK
     Route: 042
     Dates: start: 20150730, end: 20151224
  9. LYRICA [Concomitant]
     Active Substance: PREGABALIN
     Route: 048
  10. SLOW-K [Concomitant]
     Active Substance: POTASSIUM CHLORIDE
     Route: 042
  11. VEEN D [Concomitant]
     Active Substance: CALCIUM CHLORIDE\DEXTROSE\POTASSIUM CHLORIDE\SODIUM ACETATE\SODIUM CHLORIDE
     Indication: FEBRILE NEUTROPENIA
     Route: 042
  12. BERIZYM                            /07475701/ [Concomitant]
     Route: 048
  13. SALINE                             /00075401/ [Concomitant]
     Active Substance: SODIUM CHLORIDE
     Indication: FEBRILE NEUTROPENIA
     Route: 065
  14. JANUVIA [Concomitant]
     Active Substance: SITAGLIPTIN PHOSPHATE
     Route: 048
  15. URSODEOXYCHOL [Concomitant]
     Route: 048
  16. BFLUID [Concomitant]
     Active Substance: AMINO ACIDS\DEXTROSE\ELECTROLYTES NOS\VITAMINS
     Indication: FEBRILE NEUTROPENIA
     Route: 042
  17. FAMOTIDINE. [Concomitant]
     Active Substance: FAMOTIDINE
     Indication: FEBRILE NEUTROPENIA
     Route: 042

REACTIONS (3)
  - Malignant neoplasm progression [Fatal]
  - Interstitial lung disease [Fatal]
  - Febrile neutropenia [Recovered/Resolved]

NARRATIVE: CASE EVENT DATE: 20151228
